FAERS Safety Report 5124088-8 (Version None)
Quarter: 2006Q4

REPORT INFORMATION
  Report Type: 
  Country: None (occurrence: None)
  Receive Date: 20061010
  Receipt Date: 20051202
  Transmission Date: 20070319
  Serious: No
  Sender: FDA-Public Use
  Company Number: US-BRISTOL-MYERS SQUIBB COMPANY-13203062

PATIENT
  Sex: Female

DRUGS (1)
  1. AVAPRO [Suspect]

REACTIONS (1)
  - DRUG DISPENSING ERROR [None]
